APPROVED DRUG PRODUCT: TEMARIL
Active Ingredient: TRIMEPRAZINE TARTRATE
Strength: EQ 5MG BASE
Dosage Form/Route: CAPSULE, EXTENDED RELEASE;ORAL
Application: N011316 | Product #004
Applicant: ALLERGAN HERBERT SKIN CARE DIV ALLERGAN INC
Approved: Approved Prior to Jan 1, 1982 | RLD: No | RS: No | Type: DISCN